FAERS Safety Report 9354561 (Version 1)
Quarter: 2013Q2

REPORT INFORMATION
  Report Type: Spontaneous
  Country: CN (occurrence: CN)
  Receive Date: 20130618
  Receipt Date: 20130618
  Transmission Date: 20140414
  Serious: Yes (Other)
  Sender: FDA-Public Use
  Company Number: CN-ASTRAZENECA-2013SE43109

PATIENT
  Age: 82 Year
  Sex: Male

DRUGS (5)
  1. BETALOC ZOK [Suspect]
     Indication: CARDIAC FAILURE
     Route: 048
     Dates: start: 20100601, end: 20120614
  2. BETALOC ZOK [Suspect]
     Indication: CARDIAC FAILURE
     Route: 048
     Dates: start: 20100601, end: 20120614
  3. NIFEDIPINE [Concomitant]
     Indication: HYPERTENSION
     Route: 048
     Dates: start: 20100601, end: 20120614
  4. XINKANG [Concomitant]
     Indication: CARDIAC FAILURE
     Route: 048
     Dates: start: 20100601, end: 20120614
  5. TONGXINLUO TABLETSTCM [Concomitant]
     Indication: CARDIAC FAILURE
     Route: 048
     Dates: start: 20100601, end: 20120614

REACTIONS (6)
  - Myocardial ischaemia [Recovering/Resolving]
  - Cerebral ischaemia [Recovering/Resolving]
  - Asphyxia [Recovering/Resolving]
  - Bradycardia [Recovering/Resolving]
  - Chest discomfort [Recovering/Resolving]
  - Arrhythmia [Recovering/Resolving]
